FAERS Safety Report 5750702-X (Version None)
Quarter: 2008Q2

REPORT INFORMATION
  Report Type: 
  Country: None (occurrence: None)
  Receive Date: 20080528
  Receipt Date: 20080516
  Transmission Date: 20081010
  Serious: Yes (Other)
  Sender: FDA-Public Use
  Company Number: FR-ROCHE-566336

PATIENT
  Age: 50 Year
  Sex: Female

DRUGS (9)
  1. BONIVA [Suspect]
     Indication: OSTEOPOROSIS POSTMENOPAUSAL
     Route: 048
     Dates: start: 20071001
  2. LEXOMIL [Concomitant]
  3. STATIN [Concomitant]
     Indication: DYSLIPIDAEMIA
  4. LANZOR [Concomitant]
  5. LANZOR [Concomitant]
     Dosage: RESTARTED AFTER THREE MONTHS.
  6. LERCAN [Concomitant]
     Indication: HYPERTENSION
  7. SERETIDE [Concomitant]
  8. SERETIDE [Concomitant]
  9. AMLOR [Concomitant]
     Indication: HYPERTENSION

REACTIONS (1)
  - GALACTORRHOEA [None]
